FAERS Safety Report 4790291-X (Version None)
Quarter: 2005Q4

REPORT INFORMATION
  Report Type: 
  Country: None (occurrence: None)
  Receive Date: 20051005
  Receipt Date: 20051005
  Transmission Date: 20060501
  Serious: Yes (Life-Threatening, Hospitalization)
  Sender: FDA-Public Use
  Company Number: None

PATIENT
  Age: 53 Year
  Sex: Male
  Weight: 94 kg

DRUGS (8)
  1. PROPOFOL [Suspect]
     Indication: STATUS EPILEPTICUS
     Dosage: 83-250 MCG/KG/MIN IV
     Route: 042
     Dates: start: 20040721, end: 20040723
  2. VALPROIC ACID [Concomitant]
  3. GANCICLOVIR [Concomitant]
  4. LEVETIRACETAM [Concomitant]
  5. CEFEPIME [Concomitant]
  6. PENTOBARBITAL CAP [Concomitant]
  7. NOREPINEPHRINE [Concomitant]
  8. VASOPRESSIN [Concomitant]

REACTIONS (4)
  - CONDITION AGGRAVATED [None]
  - CONVULSION [None]
  - DRUG INEFFECTIVE [None]
  - HYPOTENSION [None]
